FAERS Safety Report 7498868-8 (Version None)
Quarter: 2011Q2

REPORT INFORMATION
  Report Type: 
  Country: None (occurrence: None)
  Receive Date: 20110524
  Receipt Date: 20110428
  Transmission Date: 20111010
  Serious: Yes (Hospitalization)
  Sender: FDA-Public Use
  Company Number: US-BAYER-2010-009308

PATIENT
  Age: 39 Year
  Sex: Female
  Weight: 96.145 kg

DRUGS (3)
  1. MOTRIN [Concomitant]
     Dosage: UNK
  2. VITAMIN K TAB [Concomitant]
     Dosage: UNK
     Route: 058
     Dates: start: 20061120
  3. YAZ [Suspect]
     Indication: ACNE
     Dosage: UNK
     Dates: start: 20060601, end: 20061001

REACTIONS (6)
  - INFERTILITY [None]
  - PAIN [None]
  - PULMONARY EMBOLISM [None]
  - STRESS [None]
  - INJURY [None]
  - ANXIETY [None]
